FAERS Safety Report 8130815-8 (Version None)
Quarter: 2012Q1

REPORT INFORMATION
  Report Type: 
  Country: None (occurrence: None)
  Receive Date: 20120213
  Receipt Date: 20120202
  Transmission Date: 20120608
  Serious: No
  Sender: FDA-Public Use
  Company Number: US-BIOGENIDEC-2012BI004321

PATIENT
  Sex: Female

DRUGS (5)
  1. AVONEX [Suspect]
     Route: 030
     Dates: start: 20000810, end: 20010214
  2. AVONEX [Suspect]
     Route: 030
     Dates: start: 20090829
  3. AVONEX [Suspect]
     Indication: MULTIPLE SCLEROSIS
     Route: 030
     Dates: start: 19970812, end: 19990224
  4. AVONEX [Suspect]
     Route: 030
     Dates: start: 20080108, end: 20090801
  5. AVONEX [Suspect]
     Route: 030
     Dates: start: 20070501, end: 20070903

REACTIONS (7)
  - NECK PAIN [None]
  - MUSCLE SPASMS [None]
  - MUSCLE SPASTICITY [None]
  - MOTOR DYSFUNCTION [None]
  - PROCEDURAL PAIN [None]
  - INTERVERTEBRAL DISC PROTRUSION [None]
  - CARPAL TUNNEL SYNDROME [None]
